FAERS Safety Report 22020956 (Version 1)
Quarter: 2023Q1

REPORT INFORMATION
  Report Type: Spontaneous
  Country: US (occurrence: None)
  Receive Date: 20230217
  Receipt Date: 20230217
  Transmission Date: 20230418
  Serious: No
  Sender: FDA-Public Use
  Company Number: None

PATIENT
  Sex: Male
  Weight: 94.8 kg

DRUGS (14)
  1. TEMOZOLOMIDE [Suspect]
     Active Substance: TEMOZOLOMIDE
     Indication: Brain neoplasm malignant
     Dosage: OTHER FREQUENCY : 21 DAYS ON, 7D OFF;?
     Route: 048
     Dates: start: 202301
  2. TEMOZOLOMIDE [Suspect]
     Active Substance: TEMOZOLOMIDE
     Indication: Brain neoplasm malignant
     Dosage: OTHER FREQUENCY : 21 DAYS ON, 7D OFF;?
     Dates: start: 202301
  3. ASPIRIN [Concomitant]
     Active Substance: ASPIRIN
  4. ATORVASTATIN [Concomitant]
     Active Substance: ATORVASTATIN
  5. DEXAMETHASONE [Concomitant]
     Active Substance: DEXAMETHASONE
  6. FLAXSEED [Concomitant]
     Active Substance: FLAX SEED
  7. ACETAMINOPHEN\HYDROCODONE [Concomitant]
     Active Substance: ACETAMINOPHEN\HYDROCODONE
  8. LORAZEPAM [Concomitant]
     Active Substance: LORAZEPAM
  9. VITAMINS [Concomitant]
     Active Substance: VITAMINS
  10. Nicotine Step 1 [Concomitant]
  11. NITROGLYCERIN [Concomitant]
     Active Substance: NITROGLYCERIN
  12. PLAVIX [Concomitant]
     Active Substance: CLOPIDOGREL BISULFATE
  13. TIZANIDINE [Concomitant]
     Active Substance: TIZANIDINE
  14. Vitamin B Complex Combinations [Concomitant]

REACTIONS (1)
  - Hospice care [None]
